FAERS Safety Report 4395569-X (Version None)
Quarter: 2004Q3

REPORT INFORMATION
  Report Type: 
  Country: None (occurrence: None)
  Receive Date: 20040709
  Receipt Date: 20040626
  Transmission Date: 20050211
  Serious: Yes (Other)
  Sender: FDA-Public Use
  Company Number: US-JNJFOC-20040608418

PATIENT
  Age: 67 Year
  Sex: Female
  Weight: 72.5755 kg

DRUGS (12)
  1. REMICADE [Suspect]
     Indication: RHEUMATOID ARTHRITIS
     Dosage: INTRAVENOUS
     Route: 042
     Dates: start: 20040505, end: 20040505
  2. METHOTREXATE [Concomitant]
  3. BEXTRA [Concomitant]
  4. FOLIC ACID [Concomitant]
  5. ACCUPRIL [Concomitant]
  6. PROTONIX [Concomitant]
  7. PROZAC [Concomitant]
  8. ZYRTEC [Concomitant]
  9. ESTROTEST          (ESTROTEST) [Concomitant]
  10. CALCIUM (CALCIUM) [Concomitant]
  11. VITAMINS (VITAMINS) [Concomitant]
  12. FISH OIL (FISH OIL) [Concomitant]

REACTIONS (1)
  - AUTOIMMUNE DISORDER [None]
